FAERS Safety Report 24575276 (Version 1)
Quarter: 2024Q4

REPORT INFORMATION
  Report Type: Spontaneous
  Country: CN (occurrence: CN)
  Receive Date: 20241104
  Receipt Date: 20241104
  Transmission Date: 20250114
  Serious: Yes (Life-Threatening, Hospitalization)
  Sender: PFIZER
  Company Number: CN-MLMSERVICE-20241021-PI229023-00270-2

PATIENT
  Age: 62 Year
  Sex: Male
  Weight: 60 kg

DRUGS (3)
  1. METHYLPREDNISOLONE [Suspect]
     Active Substance: METHYLPREDNISOLONE
     Indication: Pemphigoid
     Dosage: 44 MG, 1X/DAY
     Route: 048
     Dates: start: 2023, end: 2023
  2. METHYLPREDNISOLONE [Suspect]
     Active Substance: METHYLPREDNISOLONE
     Dosage: 4 MG, 1X/DAY (GRADUALLY DECREASED TO 4 MG)
     Route: 048
     Dates: start: 202310, end: 202311
  3. TOFACITINIB CITRATE [Suspect]
     Active Substance: TOFACITINIB CITRATE
     Indication: Pemphigoid
     Dosage: 5 MG, 1X/DAY
     Dates: start: 2023

REACTIONS (11)
  - Bronchopulmonary aspergillosis [Recovering/Resolving]
  - Nocardiosis [Recovering/Resolving]
  - Abscess bacterial [Recovering/Resolving]
  - Breast abscess [Recovering/Resolving]
  - Extradural abscess [Recovering/Resolving]
  - Brain abscess [Recovering/Resolving]
  - Klebsiella infection [Recovering/Resolving]
  - Psoas abscess [Recovering/Resolving]
  - Abdominal abscess [Recovering/Resolving]
  - Pleural effusion [Recovering/Resolving]
  - Cutaneous nocardiosis [Recovering/Resolving]

NARRATIVE: CASE EVENT DATE: 20230101
